FAERS Safety Report 8888185 (Version 1)
Quarter: 2012Q4

REPORT INFORMATION
  Report Type: 
  Country: US (occurrence: US)
  Receive Date: 20121106
  Receipt Date: 20121106
  Transmission Date: 20130627
  Serious: No
  Sender: FDA-Public Use
  Company Number: US-JNJFOC-20121015062

PATIENT
  Sex: Female
  Weight: 90.72 kg

DRUGS (11)
  1. DURAGESIC [Suspect]
     Indication: NERVE INJURY
     Route: 062
  2. DURAGESIC [Suspect]
     Indication: NERVE INJURY
     Route: 062
  3. DURAGESIC [Suspect]
     Indication: NERVE INJURY
     Route: 062
  4. MYLAN FENTANYL TRANSDERMAL SYSTEM [Suspect]
     Indication: PRODUCT USED FOR UNKNOWN INDICATION
     Route: 062
  5. CLONIDINE [Concomitant]
     Indication: CARDIAC DISORDER
     Route: 065
  6. OXYCODONE [Concomitant]
     Indication: PAIN
     Route: 048
  7. AN UNKNOWN  MEDICATION [Concomitant]
     Indication: NEURALGIA
     Route: 045
  8. KETAMINE [Concomitant]
     Indication: NEURALGIA
     Route: 045
  9. AMITRIPTYLINE [Concomitant]
     Indication: PRODUCT USED FOR UNKNOWN INDICATION
     Route: 065
  10. AN UNKNOWN MEDICATION [Concomitant]
     Indication: PRODUCT USED FOR UNKNOWN INDICATION
     Route: 065
  11. METHADONE [Concomitant]
     Indication: PRODUCT USED FOR UNKNOWN INDICATION
     Route: 065

REACTIONS (9)
  - Breakthrough pain [Recovered/Resolved]
  - Wrong technique in drug usage process [Not Recovered/Not Resolved]
  - Wrong technique in drug usage process [Not Recovered/Not Resolved]
  - Mental impairment [Not Recovered/Not Resolved]
  - Pain [Recovered/Resolved]
  - Wrong technique in drug usage process [Not Recovered/Not Resolved]
  - Drug administered at inappropriate site [Not Recovered/Not Resolved]
  - Drug ineffective [Recovered/Resolved]
  - Product quality issue [Unknown]
